FAERS Safety Report 16148617 (Version 1)
Quarter: 2019Q2

REPORT INFORMATION
  Report Type: Spontaneous
  Country: US (occurrence: US)
  Receive Date: 20190402
  Receipt Date: 20190402
  Transmission Date: 20190711
  Serious: No
  Sender: FDA-Public Use
  Company Number: US-PFIZER INC-2019126439

PATIENT
  Sex: Female

DRUGS (1)
  1. AROMASIN [Suspect]
     Active Substance: EXEMESTANE
     Dosage: UNK
     Dates: start: 20190312

REACTIONS (6)
  - Intentional product use issue [Unknown]
  - Intentional product misuse [Unknown]
  - Burning sensation [Unknown]
  - Oral discomfort [Unknown]
  - Pain in extremity [Unknown]
  - Toothache [Unknown]
